FAERS Safety Report 10487822 (Version 2)
Quarter: 2014Q4

REPORT INFORMATION
  Report Type: Spontaneous
  Country: DK (occurrence: DK)
  Receive Date: 20141001
  Receipt Date: 20141001
  Transmission Date: 20150528
  Serious: Yes (Other)
  Sender: FDA-Public Use
  Company Number: DK-ABBVIE-14P-044-1254032-00

PATIENT
  Age: 41 Year
  Sex: Male

DRUGS (2)
  1. ADALIMUMAB [Suspect]
     Active Substance: ADALIMUMAB
     Indication: PSORIATIC ARTHROPATHY
     Dates: start: 200602
  2. METHOTREXATE [Concomitant]
     Active Substance: METHOTREXATE
     Indication: PSORIATIC ARTHROPATHY

REACTIONS (6)
  - Central nervous system lesion [Recovering/Resolving]
  - Bladder disorder [Recovering/Resolving]
  - Temperature intolerance [Recovering/Resolving]
  - Asthenia [Recovering/Resolving]
  - Multiple sclerosis [Recovering/Resolving]
  - Demyelination [Recovering/Resolving]

NARRATIVE: CASE EVENT DATE: 2010
